FAERS Safety Report 8422579-5 (Version None)
Quarter: 2012Q2

REPORT INFORMATION
  Report Type: 
  Country: None (occurrence: None)
  Receive Date: 20120604
  Receipt Date: 20120521
  Transmission Date: 20120825
  Serious: Yes (Death, Other)
  Sender: FDA-Public Use
  Company Number: 2012P1031859

PATIENT
  Age: 4 Year
  Sex: Female

DRUGS (2)
  1. TUSSIONEX [Suspect]
     Indication: CROUP INFECTIOUS
     Dosage: 0.5 TSP; QD;
  2. DIPHENHYDRAMINE HCL [Suspect]

REACTIONS (3)
  - TOXICITY TO VARIOUS AGENTS [None]
  - RESUSCITATION [None]
  - UNRESPONSIVE TO STIMULI [None]
